FAERS Safety Report 9886572 (Version 2)
Quarter: 2014Q1

REPORT INFORMATION
  Report Type: Spontaneous
  Country: US (occurrence: US)
  Receive Date: 20140210
  Receipt Date: 20140212
  Transmission Date: 20141002
  Serious: Yes (Hospitalization, Other)
  Sender: FDA-Public Use
  Company Number: US-ELI_LILLY_AND_COMPANY-US201401010581

PATIENT
  Age: 80 Year
  Sex: Female

DRUGS (4)
  1. HUMULIN NPH [Suspect]
     Indication: TYPE 2 DIABETES MELLITUS
     Dosage: 12 U, EACH EVENING
     Route: 065
     Dates: start: 201304
  2. HUMULIN NPH [Suspect]
     Route: 065
  3. JANUVIA [Concomitant]
  4. GLIPIZIDE [Concomitant]

REACTIONS (5)
  - Fall [Recovering/Resolving]
  - Upper limb fracture [Recovering/Resolving]
  - Upper limb fracture [Recovering/Resolving]
  - Laceration [Recovering/Resolving]
  - Drug dose omission [Unknown]
